FAERS Safety Report 8769795 (Version 1)
Quarter: 2012Q4

REPORT INFORMATION
  Report Type: 
  Country: AU (occurrence: AU)
  Receive Date: 20120905
  Receipt Date: 20120905
  Transmission Date: 20130627
  Serious: Yes (Life-Threatening)
  Sender: FDA-Public Use
  Company Number: AU-MERCK-2012SP025295

PATIENT

DRUGS (5)
  1. SAPHRIS [Suspect]
     Indication: PSYCHOTIC DISORDER
     Dosage: Wafer, 5 mg, ONCE
     Route: 060
     Dates: start: 20120510, end: 20120510
  2. NEULACTIL [Concomitant]
     Indication: ANXIETY
     Dosage: UNK UNK, Unknown
     Route: 065
  3. LITHIUM [Concomitant]
     Dosage: UNK UNK, Unknown
     Route: 065
  4. VALIUM [Concomitant]
     Dosage: UPDATE (14MAY2012): UNIT DOSE: 10, FORM STRENGTH: 5 MG
     Route: 065
     Dates: start: 20120509, end: 20120509
  5. CIPRAMIL [Concomitant]
     Dosage: UPDATE (14MAY2012)
     Route: 065

REACTIONS (3)
  - Anaphylactic reaction [Unknown]
  - Hyperaesthesia [Unknown]
  - Off label use [Unknown]
